FAERS Safety Report 14182100 (Version 2)
Quarter: 2017Q4

REPORT INFORMATION
  Report Type: Spontaneous
  Country: DE (occurrence: DE)
  Receive Date: 20171113
  Receipt Date: 20171225
  Transmission Date: 20180321
  Serious: Yes (Disabling, Other)
  Sender: FDA-Public Use
  Company Number: DE-AMGEN-DEUSP2017168121

PATIENT
  Age: 88 Year
  Sex: Female

DRUGS (2)
  1. PROLIA [Suspect]
     Active Substance: DENOSUMAB
     Indication: RENAL FAILURE
  2. PROLIA [Suspect]
     Active Substance: DENOSUMAB
     Indication: OSTEOPOROSIS POSTMENOPAUSAL
     Dosage: 60 MG, UNK
     Route: 058
     Dates: start: 20161213, end: 20161213

REACTIONS (10)
  - Walking disability [Not Recovered/Not Resolved]
  - Bone cyst [Unknown]
  - Off label use [Unknown]
  - Joint crepitation [Unknown]
  - Bone pain [Not Recovered/Not Resolved]
  - Joint range of motion decreased [Unknown]
  - Osteonecrosis [Not Recovered/Not Resolved]
  - Osteoarthritis [Unknown]
  - Weight decreased [Unknown]
  - Asthenia [Not Recovered/Not Resolved]

NARRATIVE: CASE EVENT DATE: 2017
